FAERS Safety Report 9750210 (Version 4)
Quarter: 2014Q2

REPORT INFORMATION
  Report Type: Spontaneous
  Country: AU (occurrence: AU)
  Receive Date: 20131212
  Receipt Date: 20140527
  Transmission Date: 20141212
  Serious: Yes (Death)
  Sender: FDA-Public Use
  Company Number: AU-UCBSA-104986

PATIENT
  Age: 7 Year
  Sex: 0

DRUGS (4)
  1. VIMPAT [Suspect]
     Indication: EPILEPSY
     Dates: start: 201309, end: 20130912
  2. LEVETIRACETAM [Suspect]
     Indication: EPILEPSY
     Dates: start: 201309, end: 20130912
  3. LEVETIRACETAM [Suspect]
     Indication: EPILEPSY
  4. CLOBAZAM [Concomitant]
     Dosage: 5 MG MANE AND 10 MG NOCTE

REACTIONS (1)
  - Sudden unexplained death in epilepsy [Fatal]
